FAERS Safety Report 5909180-X (Version None)
Quarter: 2008Q4

REPORT INFORMATION
  Report Type: 
  Country: None (occurrence: None)
  Receive Date: 20081006
  Receipt Date: 20080930
  Transmission Date: 20090506
  Serious: Yes (Other)
  Sender: FDA-Public Use
  Company Number: US-ABBOTT-08P-163-0479003-00

PATIENT
  Sex: Female

DRUGS (6)
  1. HUMIRA [Suspect]
     Indication: ARTHRITIS
     Route: 058
     Dates: start: 20080101
  2. HUMIRA [Suspect]
     Indication: COLITIS ULCERATIVE
  3. 2 UNKNOWN BLOOD PRESSURE MEDICATIONS [Concomitant]
     Indication: HYPERTENSION
     Dates: start: 20070101
  4. FEXOFENIDINE [Concomitant]
     Indication: HYPERSENSITIVITY
  5. NASAL SPRAY [Concomitant]
     Indication: HYPERSENSITIVITY
     Route: 045
  6. MESALAMINE [Concomitant]
     Indication: COLITIS ULCERATIVE
     Dates: start: 19960101, end: 20080930

REACTIONS (3)
  - BLOOD CREATINE INCREASED [None]
  - PROCEDURAL COMPLICATION [None]
  - RENAL IMPAIRMENT [None]
